FAERS Safety Report 13650179 (Version 1)
Quarter: 2017Q2

REPORT INFORMATION
  Report Type: Spontaneous
  Country: KR (occurrence: KR)
  Receive Date: 20170614
  Receipt Date: 20170614
  Transmission Date: 20170830
  Serious: Yes (Hospitalization)
  Sender: FDA-Public Use
  Company Number: KR-ROCHE-1790222

PATIENT
  Age: 43 Year
  Sex: Female
  Weight: 60 kg

DRUGS (13)
  1. TRASTUZUMAB [Suspect]
     Active Substance: TRASTUZUMAB
     Indication: BREAST CANCER
     Route: 042
     Dates: start: 20160121
  2. DOCETAXEL. [Suspect]
     Active Substance: DOCETAXEL
     Indication: BREAST CANCER
     Route: 042
     Dates: start: 20160121
  3. NEOPLATIN (SOUTH KOREA) [Concomitant]
     Indication: BREAST CANCER
     Route: 042
     Dates: start: 20160121
  4. PERTUZUMAB [Suspect]
     Active Substance: PERTUZUMAB
     Indication: BREAST CANCER
     Route: 042
     Dates: start: 20160121
  5. TANTUM (SOUTH KOREA) [Concomitant]
     Dosage: GARGLE
     Route: 065
     Dates: start: 20160121
  6. CURAN [Concomitant]
     Active Substance: RANITIDINE HYDROCHLORIDE
     Route: 048
     Dates: start: 20160121
  7. DEXAMETHASONE. [Concomitant]
     Active Substance: DEXAMETHASONE
     Route: 042
     Dates: start: 20160121
  8. PENIRAMIN [Concomitant]
     Route: 042
     Dates: start: 20160121
  9. NEURONTIN (SOUTH KOREA) [Concomitant]
     Route: 048
     Dates: start: 20160121
  10. FEROBA-YOU SR [Concomitant]
     Indication: ANAEMIA
     Route: 048
     Dates: start: 20160330
  11. SANCUSO [Concomitant]
     Active Substance: GRANISETRON
     Route: 065
     Dates: start: 20160121
  12. SUSPEN ER [Concomitant]
     Route: 048
     Dates: start: 20160121
  13. KYTRIL [Concomitant]
     Active Substance: GRANISETRON HYDROCHLORIDE
     Route: 048
     Dates: start: 20160121

REACTIONS (2)
  - Aspartate aminotransferase increased [Recovered/Resolved]
  - Alanine aminotransferase increased [Recovered/Resolved]

NARRATIVE: CASE EVENT DATE: 20160303
